FAERS Safety Report 4484498-9 (Version None)
Quarter: 2004Q3

REPORT INFORMATION
  Report Type: 
  Country: None (occurrence: None)
  Receive Date: 20040921
  Receipt Date: 20031212
  Transmission Date: 20050211
  Serious: Yes (Hospitalization)
  Sender: FDA-Public Use
  Company Number: 163-20785-03120354 (0)

PATIENT
  Age: 82 Year
  Sex: Female

DRUGS (5)
  1. THALOMID [Suspect]
     Indication: MYELODYSPLASTIC SYNDROME
     Dosage: 50 MG, DAILY, ORAL
     Route: 048
     Dates: start: 20031121
  2. LASIX [Concomitant]
  3. DIGOXIN [Concomitant]
  4. AVANDIA [Concomitant]
  5. SYNTHROID [Concomitant]

REACTIONS (2)
  - DYSPNOEA [None]
  - FATIGUE [None]
